FAERS Safety Report 5126761-4 (Version None)
Quarter: 2006Q4

REPORT INFORMATION
  Report Type: 
  Country: None (occurrence: None)
  Receive Date: 20061011
  Receipt Date: 20061011
  Transmission Date: 20070319
  Serious: Yes (Hospitalization)
  Sender: FDA-Public Use
  Company Number: None

PATIENT
  Age: 52 Year
  Sex: Female
  Weight: 66.5 kg

DRUGS (1)
  1. REMODULIN [Suspect]
     Indication: PULMONARY HYPERTENSION
     Dosage: 58 NG/KG/MIN   CONTINUOUS   INTRAVENOUS
     Route: 042
     Dates: start: 20060620

REACTIONS (2)
  - BLOOD CULTURE POSITIVE [None]
  - FATIGUE [None]
